FAERS Safety Report 6266082-X (Version None)
Quarter: 2009Q3

REPORT INFORMATION
  Report Type: 
  Country: None (occurrence: None)
  Receive Date: 20090713
  Receipt Date: 20090701
  Transmission Date: 20100115
  Serious: No
  Sender: FDA-Public Use
  Company Number: US-ELI_LILLY_AND_COMPANY-US200907001170

PATIENT
  Sex: Male

DRUGS (2)
  1. CYMBALTA [Suspect]
  2. LISINOPRIL [Concomitant]

REACTIONS (1)
  - HEPATIC ENZYME INCREASED [None]
